FAERS Safety Report 7770234-7 (Version None)
Quarter: 2011Q3

REPORT INFORMATION
  Report Type: 
  Country: None (occurrence: None)
  Receive Date: 20110922
  Receipt Date: 20110414
  Transmission Date: 20111222
  Serious: No
  Sender: FDA-Public Use
  Company Number: US-ASTRAZENECA-2011SE21815

PATIENT
  Age: 23 Year
  Sex: Female
  Weight: 63.5 kg

DRUGS (1)
  1. SEROQUEL XR [Suspect]
     Indication: SLEEP DISORDER
     Route: 048

REACTIONS (4)
  - OFF LABEL USE [None]
  - SPEECH DISORDER [None]
  - HYPOAESTHESIA ORAL [None]
  - TONGUE DISORDER [None]
